FAERS Safety Report 18250420 (Version 6)
Quarter: 2025Q1

REPORT INFORMATION
  Report Type: Report from Study
  Country: KR (occurrence: KR)
  Receive Date: 20200909
  Receipt Date: 20250212
  Transmission Date: 20250409
  Serious: Yes (Death, Hospitalization, Other)
  Sender: JOHNSON AND JOHNSON
  Company Number: None

PATIENT
  Age: 62 Year
  Sex: Female
  Weight: 57.2 kg

DRUGS (86)
  1. UPTRAVI [Suspect]
     Active Substance: SELEXIPAG
     Indication: Pulmonary arterial hypertension
     Dosage: 0.2 MG, BID
     Route: 048
     Dates: start: 20171222, end: 20180118
  2. UPTRAVI [Suspect]
     Active Substance: SELEXIPAG
     Dosage: 0.2 MG, QID
     Route: 048
     Dates: start: 20180119, end: 20180125
  3. UPTRAVI [Suspect]
     Active Substance: SELEXIPAG
     Dosage: 1.2 MG, QD
     Route: 048
     Dates: start: 20180126, end: 20180411
  4. UPTRAVI [Suspect]
     Active Substance: SELEXIPAG
     Dosage: 1 MG, QD
     Route: 048
     Dates: start: 20180412, end: 20180412
  5. UPTRAVI [Suspect]
     Active Substance: SELEXIPAG
     Route: 048
     Dates: start: 20180413, end: 20180415
  6. UPTRAVI [Suspect]
     Active Substance: SELEXIPAG
     Route: 048
     Dates: start: 20180418, end: 20180418
  7. UPTRAVI [Suspect]
     Active Substance: SELEXIPAG
     Route: 048
     Dates: start: 20180416, end: 20180417
  8. UPTRAVI [Suspect]
     Active Substance: SELEXIPAG
     Route: 048
     Dates: start: 20180419, end: 20180423
  9. OPSUMIT [Suspect]
     Active Substance: MACITENTAN
     Indication: Pulmonary arterial hypertension
     Dosage: 10 MG, QD
     Route: 048
     Dates: start: 20171128, end: 20180524
  10. OPSUMIT [Suspect]
     Active Substance: MACITENTAN
     Indication: Pulmonary hypertension
  11. SPIRONOLACTONE [Concomitant]
     Active Substance: SPIRONOLACTONE
     Route: 048
     Dates: start: 20180202, end: 20180304
  12. SPIRONOLACTONE [Concomitant]
     Active Substance: SPIRONOLACTONE
     Route: 048
     Dates: start: 20161019, end: 20180119
  13. SPIRONOLACTONE [Concomitant]
     Active Substance: SPIRONOLACTONE
     Route: 048
     Dates: start: 20180305
  14. SPIRONOLACTONE [Concomitant]
     Active Substance: SPIRONOLACTONE
     Route: 048
     Dates: start: 20180119, end: 20180201
  15. ACETAMINOPHEN [Concomitant]
     Active Substance: ACETAMINOPHEN
     Route: 048
     Dates: start: 20180222, end: 20180302
  16. ACETAMINOPHEN [Concomitant]
     Active Substance: ACETAMINOPHEN
     Route: 048
     Dates: start: 20180304, end: 20180305
  17. DIAZEPAM [Concomitant]
     Active Substance: DIAZEPAM
     Dosage: 5 MG, QD
     Route: 048
     Dates: start: 20180221, end: 20180221
  18. DIAZEPAM [Concomitant]
     Active Substance: DIAZEPAM
     Dates: start: 20180221, end: 20180221
  19. SILDENAFIL CITRATE [Concomitant]
     Active Substance: SILDENAFIL CITRATE
     Indication: Pulmonary arterial hypertension
     Dosage: 60 MG, TID
     Route: 048
     Dates: start: 20151230, end: 20180208
  20. PHAZYME [AMYLASE;LIPASE;PROTEASE NOS;SIMETICONE] [Concomitant]
     Indication: Prophylaxis
     Dosage: 95 MG, TID
     Route: 048
     Dates: start: 20171124, end: 20180405
  21. CANRENOATE POTASSIUM [Concomitant]
     Active Substance: CANRENOATE POTASSIUM
     Dosage: 25 MG, BID
     Route: 048
     Dates: start: 20161019, end: 20180119
  22. CANRENOATE POTASSIUM [Concomitant]
     Active Substance: CANRENOATE POTASSIUM
     Dosage: 25 MG, TID
     Route: 048
     Dates: start: 20180119, end: 20180201
  23. CANRENOATE POTASSIUM [Concomitant]
     Active Substance: CANRENOATE POTASSIUM
     Dosage: 25 MG, BID
     Route: 048
     Dates: start: 20180202, end: 20180304
  24. CANRENOATE POTASSIUM [Concomitant]
     Active Substance: CANRENOATE POTASSIUM
     Dosage: 25 MG, TID
     Route: 048
     Dates: start: 20180305, end: 20180409
  25. CANRENOATE POTASSIUM [Concomitant]
     Active Substance: CANRENOATE POTASSIUM
     Route: 048
     Dates: start: 20180105, end: 20180201
  26. CANRENOATE POTASSIUM [Concomitant]
     Active Substance: CANRENOATE POTASSIUM
     Route: 048
     Dates: start: 20180301, end: 20180403
  27. CANRENOATE POTASSIUM [Concomitant]
     Active Substance: CANRENOATE POTASSIUM
     Route: 048
     Dates: start: 20180316
  28. LASIX [Concomitant]
     Active Substance: FUROSEMIDE
     Dosage: 3 DF, QD
     Route: 048
     Dates: start: 20171126, end: 20171214
  29. LASIX [Concomitant]
     Active Substance: FUROSEMIDE
     Dosage: UNK, QID
     Route: 048
     Dates: start: 20171215, end: 20180201
  30. LASIX [Concomitant]
     Active Substance: FUROSEMIDE
     Route: 042
     Dates: start: 20171215, end: 20171215
  31. LASIX [Concomitant]
     Active Substance: FUROSEMIDE
     Dosage: 20 MG, QD
     Route: 042
     Dates: start: 20180119, end: 20180119
  32. LASIX [Concomitant]
     Active Substance: FUROSEMIDE
     Dosage: 2 DF, BID
     Route: 048
     Dates: start: 20180202, end: 20180213
  33. LASIX [Concomitant]
     Active Substance: FUROSEMIDE
     Dosage: 3 DF, QD
     Route: 048
     Dates: start: 20180214, end: 20180221
  34. LASIX [Concomitant]
     Active Substance: FUROSEMIDE
     Dosage: 4 DF, QD
     Route: 048
     Dates: start: 20180222, end: 20180223
  35. LASIX [Concomitant]
     Active Substance: FUROSEMIDE
     Dosage: 4 DF, QD
     Route: 048
     Dates: start: 20180302, end: 20180318
  36. LASIX [Concomitant]
     Active Substance: FUROSEMIDE
     Dosage: 3 DF, QD
     Route: 048
     Dates: start: 20180319, end: 20180406
  37. LASIX [Concomitant]
     Active Substance: FUROSEMIDE
     Route: 048
     Dates: start: 20180202, end: 20180213
  38. PERINDOPRIL ARGININE [Concomitant]
     Active Substance: PERINDOPRIL ARGININE
     Dosage: 0.5 TAB, QD
     Route: 048
     Dates: start: 20171020, end: 20180201
  39. PANTOPRAZOLE SODIUM [Concomitant]
     Active Substance: PANTOPRAZOLE SODIUM
     Dosage: 40 MG, QD
     Route: 048
     Dates: start: 20171020, end: 20171214
  40. PANTOPRAZOLE SODIUM [Concomitant]
     Active Substance: PANTOPRAZOLE SODIUM
     Dosage: 20 MG, QD
     Route: 048
     Dates: start: 20171215, end: 20180524
  41. PANTOPRAZOLE SODIUM [Concomitant]
     Active Substance: PANTOPRAZOLE SODIUM
     Route: 048
     Dates: start: 20171215, end: 20180524
  42. PANTOPRAZOLE SODIUM [Concomitant]
     Active Substance: PANTOPRAZOLE SODIUM
     Route: 048
     Dates: start: 20171020, end: 20171214
  43. UDENAFIL [Concomitant]
     Active Substance: UDENAFIL
     Indication: Pulmonary arterial hypertension
     Dosage: 50 MG, QD
     Route: 048
     Dates: start: 20180209, end: 20180516
  44. LEVOTHYROXINE SODIUM [Concomitant]
     Active Substance: LEVOTHYROXINE SODIUM
     Dosage: 100 MCG, QD
     Route: 048
     Dates: start: 20131017, end: 20180530
  45. LEVOTHYROXINE SODIUM [Concomitant]
     Active Substance: LEVOTHYROXINE SODIUM
     Route: 048
     Dates: start: 20131017, end: 20180530
  46. WARFARIN [Concomitant]
     Active Substance: WARFARIN
     Dosage: 7.5 MG, QD
     Route: 048
     Dates: start: 20140502, end: 20171221
  47. WARFARIN [Concomitant]
     Active Substance: WARFARIN
     Dosage: 5 MG, QD
     Route: 048
     Dates: start: 20171222, end: 20180406
  48. WARFARIN [Concomitant]
     Active Substance: WARFARIN
     Dosage: 2.5 MG, QD
     Route: 048
     Dates: start: 20180407, end: 20180408
  49. WARFARIN [Concomitant]
     Active Substance: WARFARIN
     Dosage: 5 MG, QD
     Route: 048
     Dates: start: 20180409, end: 20180524
  50. CAVID [CALCIUM;COLECALCIFEROL;MAGNESIUM] [Concomitant]
     Dosage: 1 DF, QD
     Route: 048
     Dates: start: 20171124, end: 20180524
  51. DICAMAX [Concomitant]
     Dosage: 1 DF, QD
     Route: 048
     Dates: start: 20170730, end: 20180524
  52. CONTINE [THEOPHYLLINE] [Concomitant]
     Dosage: 600 MG, BID
     Route: 048
     Dates: start: 20180105, end: 20180201
  53. CONTINE [THEOPHYLLINE] [Concomitant]
     Dosage: 600 MG, QD
     Route: 048
     Dates: start: 20180202
  54. BEECOM [Concomitant]
     Dosage: 1 DF, QD
     Route: 048
     Dates: start: 20180119, end: 20180524
  55. REMODULIN [Concomitant]
     Active Substance: TREPROSTINIL
     Indication: Right-to-left cardiac shunt
     Dosage: 4 NG/KG, PER MIN
     Route: 058
     Dates: start: 20180412
  56. REMODULIN [Concomitant]
     Active Substance: TREPROSTINIL
     Dosage: 10 NG/KG, PER MIN
     Route: 058
     Dates: start: 20180414
  57. REMODULIN [Concomitant]
     Active Substance: TREPROSTINIL
     Dosage: 14 NG/KG, PER MIN
     Route: 058
     Dates: start: 20180415
  58. REMODULIN [Concomitant]
     Active Substance: TREPROSTINIL
     Dosage: 24 NG/KG, PER MIN
     Route: 058
     Dates: start: 20180418
  59. REMODULIN [Concomitant]
     Active Substance: TREPROSTINIL
     Dosage: 26 NG/KG, PER MIN
     Route: 058
     Dates: start: 20180419
  60. REMODULIN [Concomitant]
     Active Substance: TREPROSTINIL
     Dosage: 28 NG/KG, PER MIN
     Route: 058
     Dates: start: 20180422
  61. REMODULIN [Concomitant]
     Active Substance: TREPROSTINIL
     Dosage: 30 NG/KG, PER MIN
     Route: 058
     Dates: start: 20180424
  62. REMODULIN [Concomitant]
     Active Substance: TREPROSTINIL
     Dosage: 32 NG/KG, PER MIN
     Route: 058
     Dates: start: 20180425
  63. REMODULIN [Concomitant]
     Active Substance: TREPROSTINIL
     Dosage: 34 NG/KG, PER MIN
     Route: 058
     Dates: start: 20180428, end: 20180530
  64. K CONTIN CONTINUS [Concomitant]
     Dosage: 2 DF, QD
     Route: 048
     Dates: start: 20180105, end: 20180201
  65. K CONTIN CONTINUS [Concomitant]
     Dosage: 1 DF, QD
     Route: 048
     Dates: start: 20180202, end: 20180221
  66. K CONTIN CONTINUS [Concomitant]
     Dosage: 1 DF, QD
     Route: 048
     Dates: start: 20180222, end: 20180225
  67. K CONTIN CONTINUS [Concomitant]
     Dosage: 4 DF, QD
     Route: 048
     Dates: start: 20180301, end: 20180302
  68. K CONTIN CONTINUS [Concomitant]
     Dosage: 1 DF, QD
     Route: 048
     Dates: start: 20180316, end: 20180430
  69. K CONTIN CONTINUS [Concomitant]
     Route: 048
     Dates: start: 20180222, end: 20180225
  70. ENOXAPARIN SODIUM [Concomitant]
     Active Substance: ENOXAPARIN SODIUM
     Dosage: 60 MG, QD
     Route: 058
  71. DIOVAN [Concomitant]
     Active Substance: VALSARTAN
     Route: 048
     Dates: start: 20180222, end: 20180224
  72. DIOVAN [Concomitant]
     Active Substance: VALSARTAN
     Route: 048
     Dates: start: 20180222, end: 20180224
  73. SUSPEN [PHENOXYMETHYLPENICILLIN POTASSIUM] [Concomitant]
     Dosage: 3 DF, QD
     Route: 048
     Dates: start: 20180222, end: 20180302
  74. SUSPEN [PHENOXYMETHYLPENICILLIN POTASSIUM] [Concomitant]
     Dosage: 1 DF, QD
     Route: 048
     Dates: start: 20180304, end: 20180305
  75. FEBUXOSTAT [Concomitant]
     Active Substance: FEBUXOSTAT
     Dosage: 40 MG, QD
     Route: 048
     Dates: start: 20180316, end: 20180425
  76. SILDENAFIL [Concomitant]
     Active Substance: SILDENAFIL
     Dates: start: 20151230, end: 20180208
  77. CIALIS [Concomitant]
     Active Substance: TADALAFIL
     Dosage: 40 MG, UNK
     Route: 048
     Dates: start: 20180417, end: 20180524
  78. AMILO [AMLODIPINE BESILATE] [Concomitant]
     Dosage: 5 MG, QD
     Route: 048
     Dates: start: 20180428, end: 20180502
  79. CALCIUM POLYSTYRENE SULFONATE [Concomitant]
     Active Substance: CALCIUM POLYSTYRENE SULFONATE
     Route: 048
     Dates: start: 20180501, end: 20180520
  80. SANCUSO [Concomitant]
     Active Substance: GRANISETRON
     Dates: start: 20180505, end: 20180530
  81. DOPAMIX [Concomitant]
     Route: 042
     Dates: start: 20180522, end: 20180530
  82. NEXIUM [Concomitant]
     Active Substance: ESOMEPRAZOLE MAGNESIUM
  83. LEVOTHYROXINE SODIUM [Concomitant]
     Active Substance: LEVOTHYROXINE SODIUM
     Indication: Pulmonary hypertension
     Dates: start: 20131017, end: 20180530
  84. PANTOPRAZOLE SODIUM [Concomitant]
     Active Substance: PANTOPRAZOLE SODIUM
     Dates: start: 20171215, end: 20180524
  85. PANTOPRAZOLE SODIUM [Concomitant]
     Active Substance: PANTOPRAZOLE SODIUM
     Dates: start: 20171020, end: 20171214
  86. VALSARTAN [Concomitant]
     Active Substance: VALSARTAN
     Dates: start: 20180222, end: 20180224

REACTIONS (18)
  - Pulmonary hypertension [Fatal]
  - Cardiac failure [Fatal]
  - Cachexia [Fatal]
  - Pneumonia [Fatal]
  - Subdural haematoma [Fatal]
  - Somnolence [Fatal]
  - Stupor [Fatal]
  - Haemorrhage intracranial [Fatal]
  - Hypophagia [Not Recovered/Not Resolved]
  - Epidural haemorrhage [Not Recovered/Not Resolved]
  - Diarrhoea [Unknown]
  - Dyspepsia [Unknown]
  - Headache [Unknown]
  - Pain [Unknown]
  - Injection site pain [Not Recovered/Not Resolved]
  - Nausea [Unknown]
  - Upper respiratory tract infection [Unknown]
  - Epistaxis [Recovered/Resolved]

NARRATIVE: CASE EVENT DATE: 20170101
